FAERS Safety Report 22780748 (Version 2)
Quarter: 2024Q3

REPORT INFORMATION
  Report Type: Spontaneous
  Country: DE (occurrence: DE)
  Receive Date: 20230803
  Receipt Date: 20240724
  Transmission Date: 20241017
  Serious: Yes (Other)
  Sender: AUROBINDO
  Company Number: DE-ROCHE-3387750

PATIENT
  Age: 40 Year
  Sex: Female

DRUGS (3)
  1. DOCETAXEL [Suspect]
     Active Substance: DOCETAXEL\DOCETAXEL ANHYDROUS
     Indication: Breast cancer metastatic
     Dosage: UNK UNK, CYCLICAL (SIX CYCLES)
     Route: 065
     Dates: start: 2012
  2. CARBOPLATIN [Suspect]
     Active Substance: CARBOPLATIN
     Indication: Breast cancer metastatic
     Dosage: UNK UNK, CYCLICAL (SIX CYCLES)
     Route: 065
     Dates: start: 2012
  3. TRASTUZUMAB [Suspect]
     Active Substance: TRASTUZUMAB
     Indication: Breast cancer metastatic
     Dosage: UNK UNK, CYCLICAL (SIX CYCLES)
     Route: 065
     Dates: start: 2012

REACTIONS (3)
  - Metastases to liver [Unknown]
  - Disease progression [Unknown]
  - Drug ineffective [Unknown]

NARRATIVE: CASE EVENT DATE: 20140101
